FAERS Safety Report 19712708 (Version 7)
Quarter: 2023Q2

REPORT INFORMATION
  Report Type: Report from Study
  Country: RO (occurrence: RO)
  Receive Date: 20210816
  Receipt Date: 20230407
  Transmission Date: 20230721
  Serious: Yes (Death, Other)
  Sender: FDA-Public Use
  Company Number: RO-BRISTOL-MYERS SQUIBB COMPANY-BMS-2021-079804

PATIENT
  Age: 70 Year
  Sex: Male
  Weight: 80 kg

DRUGS (12)
  1. CARBOPLATIN [Suspect]
     Active Substance: CARBOPLATIN
     Indication: Non-small cell lung cancer
     Dosage: RECENT DOSE  CARBOPLATIN (253 MG) ON 15-MAR-2021
     Dates: start: 20210108
  2. PACLITAXEL [Suspect]
     Active Substance: PACLITAXEL
     Indication: Non-small cell lung cancer
     Dosage: RECENT DOSE OF PACLITAXEL (96 MG) ON 15-MAR-2021
     Dates: start: 20210108
  3. ROSUVASTATIN [Concomitant]
     Active Substance: ROSUVASTATIN
     Indication: Product used for unknown indication
     Dosage: EVERY 24 HOURS
     Route: 048
     Dates: start: 2018
  4. ROSUVASTATIN [Concomitant]
     Active Substance: ROSUVASTATIN
     Dosage: 20 MILLIGRAM, QD
     Route: 048
     Dates: start: 2018
  5. ACENOCOUMAROL [Concomitant]
     Active Substance: ACENOCOUMAROL
     Indication: Product used for unknown indication
     Dosage: EVERY 24 HOURS
     Route: 048
     Dates: start: 2018
  6. ACENOCOUMAROL [Concomitant]
     Active Substance: ACENOCOUMAROL
     Dosage: 4 MILLIGRAM, QD
     Route: 048
     Dates: start: 2018
  7. SULODEXIDE [Concomitant]
     Active Substance: SULODEXIDE
     Indication: Product used for unknown indication
     Dosage: 250 UNITS NOS
     Route: 048
     Dates: start: 2018
  8. PANTOPRAZOLE [Concomitant]
     Active Substance: PANTOPRAZOLE
     Indication: Prophylaxis
     Dates: start: 20210707, end: 20210708
  9. MEDROL [Concomitant]
     Active Substance: METHYLPREDNISOLONE
     Indication: Product used for unknown indication
     Dosage: 48 MILLIGRAM, QD
     Route: 048
     Dates: start: 20210623, end: 20210626
  10. MEDROL [Concomitant]
     Active Substance: METHYLPREDNISOLONE
     Dosage: 32 MILLIGRAM, QD
     Route: 048
     Dates: start: 20210627, end: 20210630
  11. MEDROL [Concomitant]
     Active Substance: METHYLPREDNISOLONE
     Dosage: 16 ABSENT 16 ABSENT 16 ABSENT, QD
     Route: 048
     Dates: start: 20210701, end: 20210704
  12. MEDROL [Concomitant]
     Active Substance: METHYLPREDNISOLONE
     Dosage: 8 MILLIGRAM, QD
     Route: 048
     Dates: start: 20210705, end: 20210707

REACTIONS (1)
  - Pneumonitis [Fatal]

NARRATIVE: CASE EVENT DATE: 20210707
